FAERS Safety Report 9757323 (Version 3)
Quarter: 2014Q1

REPORT INFORMATION
  Report Type: Report from Study
  Country: DE (occurrence: DE)
  Receive Date: 20131214
  Receipt Date: 20140121
  Transmission Date: 20141002
  Serious: Yes (Hospitalization)
  Sender: FDA-Public Use
  Company Number: DE-ROCHE-1317124

PATIENT
  Sex: Male
  Weight: 88 kg

DRUGS (4)
  1. RITUXIMAB [Suspect]
     Indication: MALIGNANT LYMPHOID NEOPLASM
     Route: 065
     Dates: start: 20131113
  2. CYTARABINE [Suspect]
     Indication: MALIGNANT LYMPHOID NEOPLASM
     Route: 065
     Dates: start: 20131114
  3. DEXAMETHASONE [Suspect]
     Indication: MALIGNANT LYMPHOID NEOPLASM
     Route: 065
     Dates: start: 20131113
  4. BORTEZOMIB [Suspect]
     Indication: MALIGNANT LYMPHOID NEOPLASM
     Route: 065
     Dates: start: 20131113, end: 20131116

REACTIONS (2)
  - Biliary colic [Recovered/Resolved]
  - Bile duct stone [Recovered/Resolved]
